FAERS Safety Report 8169004-X (Version None)
Quarter: 2012Q1

REPORT INFORMATION
  Report Type: 
  Country: None (occurrence: None)
  Receive Date: 20120227
  Receipt Date: 20120221
  Transmission Date: 20120608
  Serious: Yes (Life-Threatening, Other)
  Sender: FDA-Public Use
  Company Number: PHHO2011FR13746

PATIENT
  Sex: Male
  Weight: 62 kg

DRUGS (7)
  1. METHOTREXATE [Suspect]
     Dosage: 14118 MG, QD
     Route: 042
     Dates: start: 20110801
  2. TRAMADOL HCL [Concomitant]
     Indication: PAIN
     Dosage: UNK
  3. TRAMADOL HCL [Concomitant]
     Indication: PAIN
     Route: 048
  4. METHOTREXATE [Suspect]
     Indication: BONE SARCOMA
     Dosage: 14118 MG, QD
     Route: 042
     Dates: start: 20110721
  5. ACETAMINOPHEN [Concomitant]
     Indication: PAIN
  6. ACETAMINOPHEN [Concomitant]
     Indication: PAIN
     Route: 048
  7. ZOLEDRONIC [Suspect]
     Indication: BONE SARCOMA
     Dosage: 3.4 MG, UNK
     Route: 042
     Dates: start: 20110725

REACTIONS (2)
  - DYSENTERY [None]
  - HEPATITIS [None]
